FAERS Safety Report 8766311 (Version 1)
Quarter: 2012Q4

REPORT INFORMATION
  Report Type: 
  Country: US (occurrence: US)
  Receive Date: 20120904
  Receipt Date: 20120904
  Transmission Date: 20130627
  Serious: Yes (Other)
  Sender: FDA-Public Use
  Company Number: PHHY2012US074101

PATIENT
  Age: 52 Year
  Sex: Male

DRUGS (8)
  1. SIMVASTATIN [Suspect]
     Indication: HYPERLIPIDAEMIA
  2. VALSARTAN [Concomitant]
     Indication: HYPERTENSION
  3. HYDROCHLOROTHIAZIDE [Concomitant]
     Indication: HYPERTENSION
  4. BUPIVACAINE [Concomitant]
     Dosage: 15 mg
  5. FENTANYL [Concomitant]
     Dosage: 12 ug/ml
  6. ROPIVACAINE [Concomitant]
  7. VANCOMYCIN [Concomitant]
  8. PIPERACILLIN SODIUM W/TAZOBACTAM SODIUM [Concomitant]

REACTIONS (8)
  - Compartment syndrome [Recovered/Resolved]
  - Oedema [Recovered/Resolved]
  - Hypoaesthesia [Not Recovered/Not Resolved]
  - Erythema [Recovered/Resolved]
  - Myositis [Recovered/Resolved]
  - Alanine aminotransferase increased [Recovered/Resolved]
  - Aspartate aminotransferase increased [Recovered/Resolved]
  - Agitation [Recovered/Resolved]
